FAERS Safety Report 24439710 (Version 4)
Quarter: 2024Q4

REPORT INFORMATION
  Report Type: Spontaneous
  Country: US (occurrence: US)
  Receive Date: 20241015
  Receipt Date: 20241209
  Transmission Date: 20250115
  Serious: No
  Sender: CALLIDITAS THERAPEUTICS AB
  Company Number: US-Calliditas-2024CAL01915

PATIENT
  Age: 57 Year
  Sex: Female

DRUGS (23)
  1. TARPEYO [Suspect]
     Active Substance: BUDESONIDE
     Indication: IgA nephropathy
     Route: 048
     Dates: start: 20240913
  2. XOLAIR [Concomitant]
     Active Substance: OMALIZUMAB
  3. UBRELVY [Concomitant]
     Active Substance: UBROGEPANT
  4. SODIUM BICARBONATE [Concomitant]
     Active Substance: SODIUM BICARBONATE
  5. LYRICA [Concomitant]
     Active Substance: PREGABALIN
  6. TYLENOL [Concomitant]
     Active Substance: ACETAMINOPHEN
  7. ALBUTEROL SULFATE [Concomitant]
     Active Substance: ALBUTEROL SULFATE
  8. ALOGLIPTIN [Concomitant]
     Active Substance: ALOGLIPTIN
  9. NORVASC [Concomitant]
     Active Substance: AMLODIPINE BESYLATE
  10. COLCRYS [Concomitant]
     Active Substance: COLCHICINE
  11. CYMBALTA [Concomitant]
     Active Substance: DULOXETINE HYDROCHLORIDE
  12. FARXIGA [Concomitant]
     Active Substance: DAPAGLIFLOZIN PROPANEDIOL
  13. LABETALOL [Concomitant]
     Active Substance: LABETALOL
  14. SYNTHROID [Concomitant]
     Active Substance: LEVOTHYROXINE SODIUM
  15. LORATADINE [Concomitant]
     Active Substance: LORATADINE
  16. NYSTATIN [Concomitant]
     Active Substance: NYSTATIN
  17. MAGNESIUM [Concomitant]
     Active Substance: MAGNESIUM
  18. OMALIZUMAB [Concomitant]
     Active Substance: OMALIZUMAB
  19. LOVAZA [Concomitant]
     Active Substance: OMEGA-3-ACID ETHYL ESTERS
  20. PRILOSEC [Concomitant]
     Active Substance: OMEPRAZOLE MAGNESIUM
  21. EPIPEN [Concomitant]
     Active Substance: EPINEPHRINE
  22. HYDRALAZINE [Concomitant]
     Active Substance: HYDRALAZINE HYDROCHLORIDE
  23. ONDANSETRON [Concomitant]
     Active Substance: ONDANSETRON

REACTIONS (4)
  - Blood pressure increased [Recovered/Resolved]
  - COVID-19 [Recovering/Resolving]
  - Peripheral swelling [Not Recovered/Not Resolved]
  - Joint swelling [Not Recovered/Not Resolved]

NARRATIVE: CASE EVENT DATE: 20241101
